FAERS Safety Report 13637364 (Version 3)
Quarter: 2017Q4

REPORT INFORMATION
  Report Type: Report from Study
  Country: US (occurrence: US)
  Receive Date: 20170609
  Receipt Date: 20171226
  Transmission Date: 20180320
  Serious: Yes (Death)
  Sender: FDA-Public Use
  Company Number: US-ASTELLAS-2017US014933

PATIENT
  Sex: Female

DRUGS (1)
  1. ISAVUCONAZOLE [Suspect]
     Active Substance: ISAVUCONAZOLE
     Indication: ASPERGILLUS INFECTION
     Dates: start: 20170420, end: 20171015

REACTIONS (3)
  - Pneumonia [Fatal]
  - Nasopharyngitis [Unknown]
  - Cerebrovascular accident [Fatal]
